FAERS Safety Report 12338231 (Version 1)
Quarter: 2016Q2

REPORT INFORMATION
  Report Type: Spontaneous
  Country: US (occurrence: US)
  Receive Date: 20160505
  Receipt Date: 20160505
  Transmission Date: 20160815
  Serious: No
  Sender: FDA-Public Use
  Company Number: US-BEH-2015051429

PATIENT
  Sex: Male
  Weight: 26 kg

DRUGS (1)
  1. STIMATE [Suspect]
     Active Substance: DESMOPRESSIN ACETATE
     Indication: EPISTAXIS
     Dosage: 1 SPRAY
     Route: 045

REACTIONS (1)
  - Petechiae [Recovered/Resolved]
